FAERS Safety Report 14968329 (Version 1)
Quarter: 2018Q2

REPORT INFORMATION
  Report Type: Spontaneous
  Country: JP (occurrence: JP)
  Receive Date: 20180604
  Receipt Date: 20180604
  Transmission Date: 20180711
  Serious: Yes (Death)
  Sender: FDA-Public Use
  Company Number: JP-BAYER-2018-105466

PATIENT
  Age: 77 Year
  Sex: Male

DRUGS (3)
  1. WARFARIN [Concomitant]
     Active Substance: WARFARIN
  2. OPSUMIT [Concomitant]
     Active Substance: MACITENTAN
  3. ADEMPAS [Suspect]
     Active Substance: RIOCIGUAT
     Dosage: DAILY DOSE 7.5MG
     Route: 048

REACTIONS (1)
  - Cardiac failure [Fatal]
